FAERS Safety Report 5347827-X (Version None)
Quarter: 2007Q2

REPORT INFORMATION
  Report Type: 
  Country: None (occurrence: None)
  Receive Date: 20070515
  Receipt Date: 20070227
  Transmission Date: 20071010
  Serious: Yes (Other)
  Sender: FDA-Public Use
  Company Number: US200701005090

PATIENT
  Age: 5 Year
  Sex: Female
  Weight: 27.2 kg

DRUGS (3)
  1. KEFLEX [Suspect]
     Dosage: 100MG, DAILY (1/D)
     Dates: start: 20020928
  2. SOMATROPIN (SOMATROPIN) [Concomitant]
  3. LAMOTRIGINE [Concomitant]

REACTIONS (1)
  - SCOLIOSIS [None]
